FAERS Safety Report 24791242 (Version 3)
Quarter: 2025Q1

REPORT INFORMATION
  Report Type: Spontaneous
  Country: US (occurrence: US)
  Receive Date: 20241230
  Receipt Date: 20250207
  Transmission Date: 20250409
  Serious: Yes (Other)
  Sender: NOVO NORDISK
  Company Number: US-NOVOPROD-1340853

PATIENT
  Sex: Female

DRUGS (2)
  1. TRESIBA [Suspect]
     Active Substance: INSULIN DEGLUDEC
     Indication: Type 2 diabetes mellitus
     Dosage: 27 IU, QD
     Route: 058
  2. PLAVIX [Concomitant]
     Active Substance: CLOPIDOGREL BISULFATE
     Indication: Product used for unknown indication

REACTIONS (8)
  - Fall [Recovering/Resolving]
  - Femur fracture [Recovering/Resolving]
  - Fibula fracture [Recovering/Resolving]
  - Hypokalaemia [Unknown]
  - Stress urinary incontinence [Unknown]
  - Vomiting [Unknown]
  - Nausea [Unknown]
  - Weight increased [Unknown]

NARRATIVE: CASE EVENT DATE: 20240805
